FAERS Safety Report 12080573 (Version 1)
Quarter: 2016Q1

REPORT INFORMATION
  Report Type: Report from Study
  Country: US (occurrence: US)
  Receive Date: 20160216
  Receipt Date: 20160216
  Transmission Date: 20160526
  Serious: Yes (Hospitalization, Other)
  Sender: FDA-Public Use
  Company Number: US-JNJFOC-20160213740

PATIENT
  Age: 89 Year
  Sex: Female
  Weight: 45 kg

DRUGS (4)
  1. CARVEDILOL. [Concomitant]
     Active Substance: CARVEDILOL
     Indication: HYPERTENSION
     Route: 048
  2. PROLIA [Concomitant]
     Active Substance: DENOSUMAB
     Indication: PROPHYLAXIS
  3. IMBRUVICA [Suspect]
     Active Substance: IBRUTINIB
     Indication: CHRONIC LYMPHOCYTIC LEUKAEMIA
     Route: 048
     Dates: start: 20151112, end: 201601
  4. SIMVASTATIN. [Concomitant]
     Active Substance: SIMVASTATIN
     Indication: BLOOD CHOLESTEROL ABNORMAL
     Route: 048

REACTIONS (5)
  - Drug ineffective [Unknown]
  - Syncope [Recovered/Resolved]
  - Pulmonary oedema [Unknown]
  - Peripheral swelling [Recovering/Resolving]
  - Dehydration [Unknown]

NARRATIVE: CASE EVENT DATE: 20151122
